FAERS Safety Report 6643110-0 (Version None)
Quarter: 2010Q1

REPORT INFORMATION
  Report Type: 
  Country: None (occurrence: None)
  Receive Date: 20100319
  Receipt Date: 20100310
  Transmission Date: 20100710
  Serious: Yes (Hospitalization)
  Sender: FDA-Public Use
  Company Number: DE-ABBOTT-10P-062-0631600-00

PATIENT
  Age: 42 Year
  Sex: Male
  Weight: 75 kg

DRUGS (2)
  1. HUMIRA [Suspect]
     Indication: CROHN'S DISEASE
     Route: 058
     Dates: start: 20090922, end: 20090922
  2. HUMIRA [Suspect]
     Route: 058

REACTIONS (3)
  - ARTHRALGIA [None]
  - BONE PAIN [None]
  - MYOSITIS [None]
